FAERS Safety Report 9344209 (Version 2)
Quarter: 2013Q2

REPORT INFORMATION
  Report Type: Spontaneous
  Country: US (occurrence: None)
  Receive Date: 20130610
  Receipt Date: 20130627
  Transmission Date: 20140414
  Serious: Yes (Other)
  Sender: FDA-Public Use
  Company Number: CC400182176

PATIENT
  Age: 74 Year
  Sex: Male

DRUGS (1)
  1. BALANCED SALT SOLUTION [Suspect]
     Indication: CATARACT OPERATION
     Dosage: IRRIGATION
     Dates: start: 20130516, end: 20130516

REACTIONS (4)
  - Endophthalmitis [None]
  - Bacterial test positive [None]
  - Visual acuity reduced [None]
  - Anterior chamber fibrin [None]
